FAERS Safety Report 9502659 (Version 2)
Quarter: 2013Q4

REPORT INFORMATION
  Report Type: Spontaneous
  Country: CA (occurrence: CA)
  Receive Date: 20130906
  Receipt Date: 20131028
  Transmission Date: 20140711
  Serious: Yes (Death, Hospitalization, Other)
  Sender: FDA-Public Use
  Company Number: CA-AMGEN-CANSP2013060819

PATIENT
  Age: 78 Year
  Sex: 0

DRUGS (1)
  1. XGEVA [Suspect]
     Indication: BREAST CANCER
     Dosage: 120 MG/1.7 ML, UNK
     Route: 065
     Dates: start: 20120906, end: 20130825

REACTIONS (3)
  - Death [Fatal]
  - Breast cancer [Unknown]
  - Movement disorder [Unknown]
